FAERS Safety Report 5383391-7 (Version None)
Quarter: 2007Q3

REPORT INFORMATION
  Report Type: 
  Country: None (occurrence: None)
  Receive Date: 20070710
  Receipt Date: 20070628
  Transmission Date: 20080115
  Serious: Yes (Other)
  Sender: FDA-Public Use
  Company Number: US-PFIZER INC-2007054413

PATIENT
  Sex: Female
  Weight: 78.6 kg

DRUGS (8)
  1. CHANTIX [Suspect]
     Indication: EX-SMOKER
  2. METFORMIN HCL [Concomitant]
     Indication: DIABETES MELLITUS
  3. GLYBURIDE [Concomitant]
     Indication: DIABETES MELLITUS
  4. LASIX [Concomitant]
     Indication: OEDEMA
  5. ALLOPURINOL [Concomitant]
     Indication: GOUT
  6. ASPIRIN [Concomitant]
  7. LIPITOR [Concomitant]
  8. PLAVIX [Concomitant]

REACTIONS (3)
  - BLOOD GLUCOSE INCREASED [None]
  - FATIGUE [None]
  - VISUAL ACUITY REDUCED [None]
